FAERS Safety Report 16271598 (Version 1)
Quarter: 2019Q2

REPORT INFORMATION
  Report Type: Spontaneous
  Country: NO (occurrence: NO)
  Receive Date: 20190503
  Receipt Date: 20190503
  Transmission Date: 20190711
  Serious: Yes (Death, Hospitalization, Other)
  Sender: FDA-Public Use
  Company Number: NO-ALEXION PHARMACEUTICALS INC.-A201903242

PATIENT
  Age: 36 Year
  Sex: Female
  Weight: 64 kg

DRUGS (7)
  1. SPIRONOLACTONE. [Concomitant]
     Active Substance: SPIRONOLACTONE
     Indication: PRODUCT USED FOR UNKNOWN INDICATION
     Dosage: 50 MG, UNK
     Route: 065
  2. CANDESARTAN + HIDROCLOROTIAZIDA ACTAVIS [Concomitant]
     Active Substance: CANDESARTAN CILEXETIL\HYDROCHLOROTHIAZIDE
     Indication: PRODUCT USED FOR UNKNOWN INDICATION
     Dosage: 16/12.5 MG
     Route: 065
  3. ATORVASTATIN [Concomitant]
     Active Substance: ATORVASTATIN
     Indication: PRODUCT USED FOR UNKNOWN INDICATION
     Dosage: 200 MG, UNK
     Route: 065
  4. CARVEDILOL 1A PHARMA [Concomitant]
     Active Substance: CARVEDILOL
     Indication: PRODUCT USED FOR UNKNOWN INDICATION
     Dosage: 50 MG, UNK
     Route: 065
  5. SOLIRIS [Suspect]
     Active Substance: ECULIZUMAB
     Indication: ATYPICAL HAEMOLYTIC URAEMIC SYNDROME
     Dosage: 900 MG, QW FOR FOUR WEEKS
     Route: 042
     Dates: start: 20120214, end: 20120306
  6. SOLIRIS [Suspect]
     Active Substance: ECULIZUMAB
     Dosage: 1200 MG, Q2W
     Route: 042
     Dates: start: 20120313
  7. CLOPIDOGREL                        /01220705/ [Concomitant]
     Active Substance: CLOPIDOGREL HYDROCHLORIDE
     Indication: PRODUCT USED FOR UNKNOWN INDICATION
     Dosage: 75 MG, UNK
     Route: 065

REACTIONS (12)
  - Myocardial infarction [Unknown]
  - Hypertension [Unknown]
  - Chest pain [Unknown]
  - Ischaemic stroke [Unknown]
  - Cardiac arrest [Unknown]
  - Condition aggravated [Fatal]
  - Cerebral ischaemia [Fatal]
  - Ventricular hypertrophy [Unknown]
  - Cerebral haemorrhage [Fatal]
  - Cerebrovascular accident [Unknown]
  - Ventricular fibrillation [Unknown]
  - Haematoma [Unknown]

NARRATIVE: CASE EVENT DATE: 2014
